FAERS Safety Report 19904719 (Version 1)
Quarter: 2021Q3

REPORT INFORMATION
  Report Type: Spontaneous
  Country: US (occurrence: US)
  Receive Date: 20210930
  Receipt Date: 20210930
  Transmission Date: 20211014
  Serious: No
  Sender: FDA-Public Use
  Company Number: US-PFIZER INC-202101139522

PATIENT
  Age: 87 Year
  Sex: Female
  Weight: 51.7 kg

DRUGS (3)
  1. RITUXAN [Concomitant]
     Active Substance: RITUXIMAB
     Dosage: UNK
  2. ESTRADIOL. [Suspect]
     Active Substance: ESTRADIOL
     Dosage: UNK
  3. REVLIMID [Suspect]
     Active Substance: LENALIDOMIDE
     Indication: FOLLICULAR LYMPHOMA
     Dosage: 20 MG, 1X/DAY
     Route: 048
     Dates: start: 202105

REACTIONS (8)
  - Hot flush [Unknown]
  - Fatigue [Unknown]
  - Dry skin [Unknown]
  - Nervousness [Unknown]
  - Dry mouth [Unknown]
  - Muscle spasms [Unknown]
  - Dyspnoea [Unknown]
  - Dysgeusia [Unknown]

NARRATIVE: CASE EVENT DATE: 20210512
